FAERS Safety Report 8003407-9 (Version None)
Quarter: 2011Q4

REPORT INFORMATION
  Report Type: 
  Country: None (occurrence: None)
  Receive Date: 20111222
  Receipt Date: 20111220
  Transmission Date: 20120403
  Serious: Yes (Death)
  Sender: FDA-Public Use
  Company Number: JP-ABBOTT-11P-087-0877365-00

PATIENT
  Sex: Male

DRUGS (8)
  1. INFLIXIMAB [Suspect]
     Indication: PRODUCT USED FOR UNKNOWN INDICATION
     Dates: start: 20110107, end: 20110415
  2. METHOTREXATE [Concomitant]
     Indication: PRODUCT USED FOR UNKNOWN INDICATION
     Dosage: 8 MG/WEEK
     Dates: end: 20110708
  3. FOLIC ACID [Concomitant]
     Indication: PRODUCT USED FOR UNKNOWN INDICATION
     Dosage: 5 MG/WEEK
     Dates: end: 20110708
  4. HUMIRA [Suspect]
     Dates: end: 20101224
  5. DAIKENCHUTO [Concomitant]
     Indication: ABDOMINAL DISTENSION
     Dates: start: 20110612, end: 20110629
  6. LEVOFLOXACIN HYDRATE [Concomitant]
     Indication: INFECTION PROPHYLAXIS
     Dates: start: 20110517, end: 20110616
  7. HUMIRA [Suspect]
     Indication: PSORIATIC ARTHROPATHY
     Route: 058
     Dates: start: 20100723, end: 20100723
  8. URSODIOL [Concomitant]
     Indication: LIVER DISORDER
     Dates: start: 20110620, end: 20110713

REACTIONS (4)
  - MALAISE [None]
  - JAUNDICE [None]
  - CHOLESTASIS [None]
  - BILE DUCT CANCER [None]
